FAERS Safety Report 25674006 (Version 1)
Quarter: 2025Q3

REPORT INFORMATION
  Report Type: Report from Study
  Country: JP (occurrence: JP)
  Receive Date: 20250813
  Receipt Date: 20250813
  Transmission Date: 20251020
  Serious: Yes (Other)
  Sender: ROCHE
  Company Number: JP-ROCHE-10000357454

PATIENT

DRUGS (2)
  1. ATEZOLIZUMAB [Suspect]
     Active Substance: ATEZOLIZUMAB
     Indication: Hepatocellular carcinoma
     Route: 042
  2. BEVACIZUMAB [Suspect]
     Active Substance: BEVACIZUMAB
     Indication: Hepatocellular carcinoma
     Route: 042

REACTIONS (26)
  - Hypertension [Unknown]
  - Proteinuria [Unknown]
  - Drug-induced liver injury [Unknown]
  - Haemorrhage [Unknown]
  - Fatigue [Unknown]
  - Pyrexia [Unknown]
  - Oedema [Unknown]
  - Ascites [Unknown]
  - Colitis [Unknown]
  - Diarrhoea [Unknown]
  - Renal injury [Unknown]
  - Thyroid disorder [Unknown]
  - Stomatitis [Unknown]
  - Myasthenia gravis [Unknown]
  - Encephalitis [Unknown]
  - Meningitis [Unknown]
  - Guillain-Barre syndrome [Unknown]
  - Rash [Unknown]
  - Hypopituitarism [Unknown]
  - Adrenal insufficiency [Unknown]
  - Embolism [Unknown]
  - Dysphonia [Unknown]
  - Dysgeusia [Unknown]
  - Myelosuppression [Unknown]
  - Cytokine release syndrome [Unknown]
  - Haemophagocytic lymphohistiocytosis [Unknown]
